FAERS Safety Report 22216536 (Version 1)
Quarter: 2023Q2

REPORT INFORMATION
  Report Type: Spontaneous
  Country: US (occurrence: US)
  Receive Date: 20230417
  Receipt Date: 20230417
  Transmission Date: 20230722
  Serious: No
  Sender: FDA-Public Use
  Company Number: US-PADAGIS-2023PAD00516

PATIENT

DRUGS (2)
  1. HYDROCORTISONE [Suspect]
     Active Substance: HYDROCORTISONE
     Indication: Rash pruritic
     Dosage: UNK
     Route: 061
  2. KETOCONAZOLE [Suspect]
     Active Substance: KETOCONAZOLE
     Indication: Rash pruritic
     Dosage: UNK (CREAM)
     Route: 061

REACTIONS (1)
  - Drug ineffective [Unknown]
